FAERS Safety Report 22821179 (Version 2)
Quarter: 2024Q1

REPORT INFORMATION
  Report Type: Spontaneous
  Country: US (occurrence: US)
  Receive Date: 20230814
  Receipt Date: 20240227
  Transmission Date: 20240410
  Serious: No
  Sender: FDA-Public Use
  Company Number: US-PFIZER INC-202300272369

PATIENT
  Age: 14 Year
  Sex: Female

DRUGS (1)
  1. OXBRYTA [Suspect]
     Active Substance: VOXELOTOR
     Dosage: 300MG ORAL SUSPENSION, 5 TABLETS DAILY
     Route: 048
     Dates: start: 202208

REACTIONS (4)
  - Eye colour change [Unknown]
  - Dysgeusia [Unknown]
  - Vomiting [Unknown]
  - Product dose omission in error [Unknown]
